FAERS Safety Report 10209749 (Version 10)
Quarter: 2016Q1

REPORT INFORMATION
  Report Type: Report from Study
  Country: US (occurrence: US)
  Receive Date: 20140602
  Receipt Date: 20160122
  Transmission Date: 20160525
  Serious: Yes (Other)
  Sender: FDA-Public Use
  Company Number: US-AMGEN-USASP2014039262

PATIENT
  Age: 61 Year
  Sex: Female

DRUGS (7)
  1. ENBREL [Suspect]
     Active Substance: ETANERCEPT
     Dosage: UNK
     Route: 065
  2. ENBREL [Suspect]
     Active Substance: ETANERCEPT
     Dosage: UNK
     Route: 065
  3. METHOTREXATE [Suspect]
     Active Substance: METHOTREXATE
     Indication: PRODUCT USED FOR UNKNOWN INDICATION
     Dosage: UNK
     Route: 065
  4. PREDNISONE. [Concomitant]
     Active Substance: PREDNISONE
     Dosage: 5 MG, UNK
  5. ENBREL [Suspect]
     Active Substance: ETANERCEPT
     Dosage: UNK
     Route: 065
  6. ENBREL [Suspect]
     Active Substance: ETANERCEPT
     Indication: RHEUMATOID ARTHRITIS
     Dosage: 50 MG, QWK
     Route: 065
     Dates: start: 20140514
  7. ENBREL [Suspect]
     Active Substance: ETANERCEPT
     Dosage: UNK
     Route: 065

REACTIONS (42)
  - Fatigue [Not Recovered/Not Resolved]
  - Headache [Not Recovered/Not Resolved]
  - Dry throat [Recovered/Resolved]
  - Tongue discolouration [Recovered/Resolved]
  - Feeling cold [Recovered/Resolved]
  - Ligament rupture [Not Recovered/Not Resolved]
  - Listless [Unknown]
  - Back pain [Not Recovered/Not Resolved]
  - Sleep disorder due to a general medical condition [Not Recovered/Not Resolved]
  - Fall [Unknown]
  - Face injury [Unknown]
  - Injection site erythema [Not Recovered/Not Resolved]
  - Injection site pain [Recovered/Resolved]
  - Pilonidal cyst [Recovered/Resolved]
  - Musculoskeletal discomfort [Unknown]
  - Bone pain [Unknown]
  - Arthralgia [Not Recovered/Not Resolved]
  - Insomnia [Not Recovered/Not Resolved]
  - Cough [Recovered/Resolved]
  - Urinary incontinence [Not Recovered/Not Resolved]
  - Migraine [Unknown]
  - Oropharyngeal pain [Recovered/Resolved]
  - Vomiting [Unknown]
  - Injection site swelling [Not Recovered/Not Resolved]
  - Paronychia [Unknown]
  - Tongue disorder [Recovered/Resolved]
  - Medical device site injury [Unknown]
  - Device difficult to use [Unknown]
  - Injection site pruritus [Recovered/Resolved]
  - Injection site haemorrhage [Recovered/Resolved]
  - Malaise [Unknown]
  - Depression [Not Recovered/Not Resolved]
  - Pain in extremity [Not Recovered/Not Resolved]
  - Musculoskeletal pain [Unknown]
  - Contusion [Unknown]
  - Nausea [Unknown]
  - Somnolence [Unknown]
  - Needle issue [Unknown]
  - Nerve compression [Unknown]
  - Injection site rash [Not Recovered/Not Resolved]
  - Blood glucose increased [Unknown]
  - Injection site bruising [Not Recovered/Not Resolved]

NARRATIVE: CASE EVENT DATE: 201405
